FAERS Safety Report 24396964 (Version 2)
Quarter: 2024Q4

REPORT INFORMATION
  Report Type: Spontaneous
  Country: US (occurrence: US)
  Receive Date: 20241004
  Receipt Date: 20241008
  Transmission Date: 20250115
  Serious: Yes (Life-Threatening, Hospitalization, Other)
  Sender: PFIZER
  Company Number: US-MLMSERVICE-20240923-PI201772-00271-1

PATIENT
  Age: 34 Year
  Sex: Female

DRUGS (8)
  1. METHYLPREDNISOLONE SODIUM SUCCINATE [Suspect]
     Active Substance: METHYLPREDNISOLONE SODIUM SUCCINATE
     Indication: Neurosarcoidosis
     Dosage: PULSE DOSES
     Dates: start: 2023, end: 2024
  2. METHYLPREDNISOLONE SODIUM SUCCINATE [Suspect]
     Active Substance: METHYLPREDNISOLONE SODIUM SUCCINATE
     Indication: Sarcoidosis
  3. DEXAMETHASONE [Suspect]
     Active Substance: DEXAMETHASONE
     Indication: Sarcoidosis
     Dosage: DEXAMETHASONE TAPER
     Dates: start: 2023, end: 2024
  4. DEXAMETHASONE [Suspect]
     Active Substance: DEXAMETHASONE
     Indication: Neurosarcoidosis
     Dosage: HIGH DOSE STEROIDS
     Dates: start: 202311, end: 2023
  5. PREDNISONE [Suspect]
     Active Substance: PREDNISONE
     Indication: Sarcoidosis
     Dosage: UNK
     Dates: start: 202305, end: 2024
  6. PREDNISONE [Suspect]
     Active Substance: PREDNISONE
     Indication: Neurosarcoidosis
  7. ACETAZOLAMIDE [Concomitant]
     Active Substance: ACETAZOLAMIDE
     Indication: Sarcoidosis
     Dosage: UNK
     Dates: start: 2023
  8. ACETAZOLAMIDE [Concomitant]
     Active Substance: ACETAZOLAMIDE
     Indication: Neurosarcoidosis

REACTIONS (7)
  - Myelopathy [Recovering/Resolving]
  - Disseminated blastomycosis [Recovering/Resolving]
  - Infection [Recovering/Resolving]
  - Amnesia [Recovering/Resolving]
  - Hydrocephalus [Recovering/Resolving]
  - Cervical cord compression [Recovering/Resolving]
  - Meningitis fungal [Unknown]

NARRATIVE: CASE EVENT DATE: 20230101
